FAERS Safety Report 7772027-3 (Version None)
Quarter: 2011Q3

REPORT INFORMATION
  Report Type: 
  Country: None (occurrence: None)
  Receive Date: 20110922
  Receipt Date: 20110525
  Transmission Date: 20111222
  Serious: No
  Sender: FDA-Public Use
  Company Number: US-ASTRAZENECA-2011SE26237

PATIENT
  Age: 44 Year
  Sex: Female
  Weight: 54.4 kg

DRUGS (9)
  1. VALTEREX [Concomitant]
  2. COPAXONE [Concomitant]
  3. LAMICTAL [Concomitant]
  4. FOSAMAX [Concomitant]
  5. OXYBUTIN [Concomitant]
  6. IMIPRAMINE [Concomitant]
  7. SEROQUEL [Suspect]
     Indication: BIPOLAR DISORDER
     Route: 048
     Dates: start: 20080101, end: 20110401
  8. SEROQUEL [Suspect]
     Route: 048
     Dates: start: 20110101
  9. NASONEX [Concomitant]

REACTIONS (6)
  - NASAL CONGESTION [None]
  - PSYCHOMOTOR HYPERACTIVITY [None]
  - INSOMNIA [None]
  - DRY MOUTH [None]
  - NASOPHARYNGITIS [None]
  - PANIC ATTACK [None]
